FAERS Safety Report 6941314-0 (Version None)
Quarter: 2010Q3

REPORT INFORMATION
  Report Type: 
  Country: None (occurrence: None)
  Receive Date: 20100825
  Receipt Date: 20100819
  Transmission Date: 20110219
  Serious: Yes (Hospitalization)
  Sender: FDA-Public Use
  Company Number: US-TEVA-245503USA

PATIENT
  Age: 57 Year
  Sex: Male
  Weight: 61.472 kg

DRUGS (5)
  1. FLUOROURACIL [Suspect]
     Indication: METASTATIC NEOPLASM
     Route: 041
     Dates: start: 20070807, end: 20070913
  2. FLUOROURACIL [Suspect]
     Route: 040
     Dates: start: 20070807, end: 20070913
  3. SUNITINIB MALATE [Suspect]
     Indication: METASTATIC NEOPLASM
     Route: 048
     Dates: start: 20070808, end: 20070820
  4. IRINOTECAN HYDROCHLORIDE [Suspect]
     Indication: METASTATIC NEOPLASM
     Route: 042
     Dates: start: 20070807, end: 20070913
  5. LEUCOVORIN CALCIUM [Suspect]
     Indication: METASTATIC NEOPLASM
     Route: 042
     Dates: start: 20070807, end: 20070913

REACTIONS (2)
  - CHOLECYSTITIS ACUTE [None]
  - ENTEROBACTER SEPSIS [None]
